FAERS Safety Report 6941180 (Version 3)
Quarter: 2019Q4

REPORT INFORMATION
  Report Type: Not Available
  Country: US (occurrence: US)
  Receive Date: 20090316
  Receipt Date: 20191223
  Transmission Date: 20200122
  Serious: Yes (Death, Hospitalization)
  Sender: FDA-Public Use
  Company Number: US-CELGENEUS-163-21880-09010946

PATIENT
  Age: 75 Year
  Sex: Male

DRUGS (4)
  1. REVLIMID [Suspect]
     Active Substance: LENALIDOMIDE
     Dosage: 15 MILLIGRAM
     Route: 048
     Dates: start: 20090102, end: 200904
  2. REVLIMID [Suspect]
     Active Substance: LENALIDOMIDE
     Indication: PLASMA CELL MYELOMA
     Dosage: 25 MILLIGRAM
     Route: 048
     Dates: start: 20081128, end: 200812
  3. THALIDOMIDE [Concomitant]
     Active Substance: THALIDOMIDE
     Indication: PRODUCT USED FOR UNKNOWN INDICATION
     Route: 065
  4. VELCADE [Concomitant]
     Active Substance: BORTEZOMIB
     Indication: PRODUCT USED FOR UNKNOWN INDICATION
     Route: 065

REACTIONS (3)
  - Deep vein thrombosis [Recovered/Resolved]
  - Lung cancer metastatic [Fatal]
  - Blood count abnormal [Unknown]

NARRATIVE: CASE EVENT DATE: 200812
